FAERS Safety Report 8203737-1 (Version None)
Quarter: 2012Q1

REPORT INFORMATION
  Report Type: 
  Country: None (occurrence: None)
  Receive Date: 20120308
  Receipt Date: 20120229
  Transmission Date: 20120608
  Serious: Yes (Death, Life-Threatening, Hospitalization, Disabling)
  Sender: FDA-Public Use
  Company Number: 2011SP058154

PATIENT
  Age: 24 Year
  Sex: Female

DRUGS (1)
  1. NUVARING [Suspect]
     Indication: CONTRACEPTION
     Dosage: ;QM; VAG
     Route: 067

REACTIONS (3)
  - PULMONARY EMBOLISM [None]
  - NERVOUS SYSTEM DISORDER [None]
  - MYOCARDIAL INFARCTION [None]
